FAERS Safety Report 25158460 (Version 1)
Quarter: 2025Q2

REPORT INFORMATION
  Report Type: Spontaneous
  Country: KR (occurrence: KR)
  Receive Date: 20250404
  Receipt Date: 20250404
  Transmission Date: 20250716
  Serious: Yes (Other)
  Sender: CHEPLAPHARM
  Company Number: KR-CKD-20250326003

PATIENT
  Age: 64 Year
  Sex: Male

DRUGS (6)
  1. GANCICLOVIR [Suspect]
     Active Substance: GANCICLOVIR
     Indication: Cytomegalovirus viraemia
     Dosage: TWICE-WEEKLY BILATERAL INTRAVITREAL GANCICLOVIR INFUSIONS WERE STARTED
     Route: 031
  2. GANCICLOVIR [Suspect]
     Active Substance: GANCICLOVIR
     Indication: Cytomegalovirus chorioretinitis
     Dosage: TWICE-WEEKLY BILATERAL INTRAVITREAL GANCICLOVIR INFUSIONS WERE STARTED
     Route: 031
  3. VALGANCICLOVIR [Suspect]
     Active Substance: VALGANCICLOVIR
     Indication: Cytomegalovirus viraemia
     Route: 048
  4. FOSCARNET [Suspect]
     Active Substance: FOSCARNET
     Indication: Cytomegalovirus chorioretinitis
  5. FOSCARNET [Suspect]
     Active Substance: FOSCARNET
     Indication: Cytomegalovirus syndrome
  6. MYCOPHENOLATE MOFETIL [Concomitant]
     Active Substance: MYCOPHENOLATE MOFETIL

REACTIONS (6)
  - Pancytopenia [Unknown]
  - Myelosuppression [Unknown]
  - Cytomegalovirus infection reactivation [Unknown]
  - Retinal detachment [Unknown]
  - Off label use [Recovered/Resolved]
  - Off label use [Recovered/Resolved]
